FAERS Safety Report 4471939-6 (Version None)
Quarter: 2004Q4

REPORT INFORMATION
  Report Type: 
  Country: None (occurrence: None)
  Receive Date: 20041007
  Receipt Date: 20040929
  Transmission Date: 20050328
  Serious: Yes (Death, Hospitalization)
  Sender: FDA-Public Use
  Company Number: STA-AE-04-MTX-457

PATIENT
  Age: 83 Year
  Sex: Female

DRUGS (19)
  1. METHOTREXATE [Suspect]
     Indication: RHEUMATOID ARTHRITIS
  2. ENBREL [Suspect]
     Indication: RHEUMATOID ARTHRITIS
     Dosage: 25 MG 2X PER 1 WK
     Dates: start: 19990401, end: 20030218
  3. AZATHIOPRINE [Suspect]
     Indication: RHEUMATOID ARTHRITIS
  4. MYCOCRISIN  (SODIUM AUROTHIOMALATE) [Suspect]
     Indication: RHEUMATOID ARTHRITIS
  5. SANDIMMUNE [Suspect]
     Indication: RHEUMATOID ARTHRITIS
  6. LOSEC MUPS (OMEPRAZOLE MAGNESIUM) [Concomitant]
  7. MOVICOL (MACROGOL/POTASSIUM CHLORIDE/SODIUM BICARBONATE/SODIUM CHLORID [Concomitant]
  8. SERETIDE (SALMETEROL/FLUTICASONE) [Concomitant]
  9. LAKTULOSE (LACTULOSE) [Concomitant]
  10. LEVAXIN (LEVOTHYROXINE SODIUM) [Concomitant]
  11. ALVEDON (PARACETAMOL) [Concomitant]
  12. MALVITONA (CAFFEINE/DEXPANTHENOL/NICOTINANIDE/PYRIDOXINE HYDROCHLORIDE [Concomitant]
  13. RENACORT-T (TRIAMCINOLONE ACETONIDE) [Concomitant]
  14. PREDNISOLONE [Concomitant]
  15. FLUDENT (SODIUM FLUORIDE) [Concomitant]
  16. CITODON (CODEINE PHOSPHATE/PARACETAMOL) [Concomitant]
  17. ATROVERT (IPRATROPIUM BROMIDE) [Concomitant]
  18. CALCICHEW-D3 (CALCIUM CARBONATE/COLECALIFEROL) [Concomitant]
  19. TRAMADOL HCL [Concomitant]

REACTIONS (2)
  - NEOPLASM MALIGNANT [None]
  - UNEVALUABLE EVENT [None]
